FAERS Safety Report 26169943 (Version 1)
Quarter: 2025Q4

REPORT INFORMATION
  Report Type: Spontaneous
  Country: CN (occurrence: CN)
  Receive Date: 20251217
  Receipt Date: 20251217
  Transmission Date: 20260117
  Serious: Yes (Hospitalization)
  Sender: OTSUKA
  Company Number: CN-MMM-Otsuka-5OD6STRQ

PATIENT
  Age: 20 Year
  Sex: Female
  Weight: 45 kg

DRUGS (2)
  1. ABILIFY [Suspect]
     Active Substance: ARIPIPRAZOLE
     Indication: Depression
     Dosage: 5 MG, QD
     Route: 061
     Dates: start: 20251125, end: 20251208
  2. LAMOTRIGINE [Suspect]
     Active Substance: LAMOTRIGINE
     Indication: Depression
     Dosage: 50 MG, QD
     Route: 061
     Dates: start: 20251125, end: 20251208

REACTIONS (1)
  - Drug eruption [Unknown]

NARRATIVE: CASE EVENT DATE: 20251206
